FAERS Safety Report 8355186-3 (Version None)
Quarter: 2012Q2

REPORT INFORMATION
  Report Type: 
  Country: None (occurrence: None)
  Receive Date: 20120511
  Receipt Date: 20120430
  Transmission Date: 20120825
  Serious: Yes (Death, Hospitalization, Other)
  Sender: FDA-Public Use
  Company Number: US-MYLANLABS-2009AC000084

PATIENT
  Sex: Male
  Weight: 64.41 kg

DRUGS (33)
  1. ALLOPURINOL [Concomitant]
  2. ALTACE [Concomitant]
  3. KLOR-CON [Concomitant]
  4. DOBUTREX [Concomitant]
     Route: 042
  5. SODIUM CHLORIDE [Concomitant]
  6. ALLEGRA [Concomitant]
  7. COMBIVENT [Concomitant]
  8. LORTAB [Concomitant]
  9. NESIRITIDE [Concomitant]
  10. ATROVENT [Concomitant]
  11. CAPTOPRIL [Concomitant]
  12. PHENERGAN [Concomitant]
  13. INDOMETHACIN [Concomitant]
  14. COREG [Concomitant]
  15. LOVENOX [Concomitant]
  16. ALDACTONE [Concomitant]
  17. AMBIEN [Concomitant]
  18. TYLENOL (CAPLET) [Concomitant]
  19. NITROGLYCERIN [Concomitant]
  20. LEVAQUIN [Concomitant]
  21. ASPIRIN [Concomitant]
  22. PRAVACHOL [Concomitant]
  23. RESTORIL [Concomitant]
  24. LASIX [Concomitant]
     Dosage: 80MG QM, 40MG HS
  25. COLCHICINE [Concomitant]
  26. OXYGEN [Concomitant]
  27. ALBUTEROL [Concomitant]
  28. DIGOXIN [Suspect]
     Route: 048
     Dates: start: 20010118, end: 20060328
  29. LANOXIN [Concomitant]
  30. ASPIRIN [Concomitant]
  31. COUMADIN [Concomitant]
  32. NATRECOR [Concomitant]
  33. HYDRALAZINE HCL [Concomitant]

REACTIONS (89)
  - ECONOMIC PROBLEM [None]
  - MITRAL VALVE INCOMPETENCE [None]
  - DYSPNOEA [None]
  - CONGESTIVE CARDIOMYOPATHY [None]
  - INGUINAL HERNIA [None]
  - RENAL FAILURE [None]
  - CARDIOMYOPATHY [None]
  - SEPSIS [None]
  - MUSCULOSKELETAL DISCOMFORT [None]
  - PULMONARY FUNCTION TEST ABNORMAL [None]
  - SINUSITIS [None]
  - BRADYCARDIA [None]
  - BACK PAIN [None]
  - NECK PAIN [None]
  - CHEST PAIN [None]
  - ABDOMINAL PAIN [None]
  - OEDEMA PERIPHERAL [None]
  - SINUS TACHYCARDIA [None]
  - WEIGHT DECREASED [None]
  - CARDIAC FAILURE [None]
  - PERICARDIAL EFFUSION [None]
  - ARTHRALGIA [None]
  - ASTHENIA [None]
  - CONDITION AGGRAVATED [None]
  - DYSPNOEA PAROXYSMAL NOCTURNAL [None]
  - ELECTROLYTE IMBALANCE [None]
  - HEPATOMEGALY [None]
  - TENOSYNOVITIS [None]
  - BUNDLE BRANCH BLOCK RIGHT [None]
  - PULMONARY ARTERIAL HYPERTENSION [None]
  - ANAEMIA [None]
  - EMPHYSEMA [None]
  - LIGAMENT SPRAIN [None]
  - LABORATORY TEST ABNORMAL [None]
  - ORTHOPNOEA [None]
  - TOBACCO USER [None]
  - EJECTION FRACTION DECREASED [None]
  - VENTRICULAR EXTRASYSTOLES [None]
  - NEPHROSCLEROSIS [None]
  - CARDIOMEGALY [None]
  - PYREXIA [None]
  - BENIGN PROSTATIC HYPERPLASIA [None]
  - JUGULAR VEIN DISTENSION [None]
  - MYALGIA [None]
  - PULMONARY MASS [None]
  - RALES [None]
  - SCAN MYOCARDIAL PERFUSION ABNORMAL [None]
  - URINARY TRACT INFECTION [None]
  - INJURY [None]
  - SPUTUM DISCOLOURED [None]
  - CARDIOMYOPATHY ALCOHOLIC [None]
  - ARTHROPATHY [None]
  - HOSPICE CARE [None]
  - ILL-DEFINED DISORDER [None]
  - CARDIAC FAILURE CONGESTIVE [None]
  - VENTRICULAR TACHYCARDIA [None]
  - DYSPNOEA EXERTIONAL [None]
  - GOUTY ARTHRITIS [None]
  - HYPERKALAEMIA [None]
  - SINUS CONGESTION [None]
  - COUGH [None]
  - SWELLING FACE [None]
  - CARDIAC STRESS TEST ABNORMAL [None]
  - CHEST X-RAY ABNORMAL [None]
  - COMPUTERISED TOMOGRAM ABNORMAL [None]
  - HYPERTENSION [None]
  - LETHARGY [None]
  - VENOUS PRESSURE JUGULAR INCREASED [None]
  - CATHETERISATION CARDIAC [None]
  - ARTERIAL STENOSIS [None]
  - TRICUSPID VALVE INCOMPETENCE [None]
  - CARDIAC VALVE DISEASE [None]
  - RESPIRATORY DISTRESS [None]
  - ALCOHOL ABUSE [None]
  - ENTHESOPATHY [None]
  - HAEMATURIA [None]
  - DEATH [None]
  - CARDIAC MURMUR [None]
  - HYPOXIA [None]
  - PNEUMONIA [None]
  - PLEURAL EFFUSION [None]
  - PULMONARY OEDEMA [None]
  - BRADYARRHYTHMIA [None]
  - ECHOCARDIOGRAM ABNORMAL [None]
  - HYPOCALCAEMIA [None]
  - MUSCLE ATROPHY [None]
  - PRODUCTIVE COUGH [None]
  - RHONCHI [None]
  - ULTRASOUND KIDNEY ABNORMAL [None]
